FAERS Safety Report 6956725-7 (Version None)
Quarter: 2010Q3

REPORT INFORMATION
  Report Type: 
  Country: None (occurrence: None)
  Receive Date: 20100830
  Receipt Date: 20100817
  Transmission Date: 20110219
  Serious: Yes (Other)
  Sender: FDA-Public Use
  Company Number: PHHY2010CA55026

PATIENT

DRUGS (4)
  1. ZOLEDRONIC [Suspect]
     Dosage: UNK
  2. ZOLEDRONIC [Suspect]
     Dosage: 5 MG/100 ML
     Dates: start: 20100817
  3. VITAMIN D [Concomitant]
     Dosage: UNK
  4. CALCIUM [Concomitant]
     Dosage: UNK

REACTIONS (3)
  - IMPAIRED HEALING [None]
  - JOINT SWELLING [None]
  - WRIST SURGERY [None]
